FAERS Safety Report 10675332 (Version 1)
Quarter: 2014Q4

REPORT INFORMATION
  Report Type: Spontaneous
  Country: FR (occurrence: FR)
  Receive Date: 20141224
  Receipt Date: 20141224
  Transmission Date: 20150529
  Serious: Yes (Hospitalization)
  Sender: FDA-Public Use
  Company Number: PHHY2014FR167508

PATIENT
  Age: 86 Year
  Sex: Male

DRUGS (2)
  1. XENETIX [Suspect]
     Active Substance: IOBITRIDOL
     Indication: PRODUCT USED FOR UNKNOWN INDICATION
     Route: 065
     Dates: start: 20141204, end: 20141204
  2. AMOXICILLIN CLAVULANIC ACID SANDOZ [Suspect]
     Active Substance: AMOXICILLIN\CLAVULANIC ACID
     Indication: APPENDICITIS
     Dosage: 1 G, TID
     Route: 042
     Dates: start: 20141204, end: 20141206

REACTIONS (1)
  - Acute kidney injury [Unknown]
